FAERS Safety Report 25680227 (Version 1)
Quarter: 2025Q3

REPORT INFORMATION
  Report Type: Spontaneous
  Country: US (occurrence: US)
  Receive Date: 20250814
  Receipt Date: 20250814
  Transmission Date: 20251020
  Serious: Yes (Hospitalization)
  Sender: ROCHE
  Company Number: None

PATIENT
  Age: 75 Year
  Sex: Female

DRUGS (6)
  1. CELLCEPT [Suspect]
     Active Substance: MYCOPHENOLATE MOFETIL
     Indication: Gout
     Route: 065
     Dates: start: 2024, end: 2024
  2. KRYSTEXXA [Suspect]
     Active Substance: PEGLOTICASE
     Indication: Gout
     Route: 042
     Dates: start: 2023, end: 2024
  3. PREDNISONE [Suspect]
     Active Substance: PREDNISONE
     Indication: Gout
     Dosage: INITIATED LOW-DOSE PREDNISONE
     Route: 065
     Dates: start: 2023
  4. VANCOMYCIN [Concomitant]
     Active Substance: VANCOMYCIN
  5. CEFEPIME [Concomitant]
     Active Substance: CEFEPIME HYDROCHLORIDE
  6. DAPTOMYCIN [Concomitant]
     Active Substance: DAPTOMYCIN

REACTIONS (4)
  - Pseudomonas infection [Unknown]
  - Abscess limb [Recovering/Resolving]
  - Staphylococcal bacteraemia [Recovering/Resolving]
  - Osteomyelitis [Unknown]

NARRATIVE: CASE EVENT DATE: 20240101
